FAERS Safety Report 6213278-9 (Version None)
Quarter: 2009Q2

REPORT INFORMATION
  Report Type: 
  Country: None (occurrence: None)
  Receive Date: 20090603
  Receipt Date: 20090529
  Transmission Date: 20091009
  Serious: Yes (Disabling)
  Sender: FDA-Public Use
  Company Number: US-MERCK-0805USA02796

PATIENT
  Sex: Female
  Weight: 55 kg

DRUGS (3)
  1. FOSAMAX [Suspect]
     Indication: OSTEOPENIA
     Route: 048
     Dates: start: 19990101, end: 20060101
  2. FOSAMAX [Suspect]
     Route: 048
     Dates: start: 19991101
  3. FOSAMAX [Suspect]
     Route: 048
     Dates: start: 20010401, end: 20060601

REACTIONS (9)
  - GINGIVAL BLEEDING [None]
  - GINGIVITIS [None]
  - HYPOTHYROIDISM [None]
  - INFECTION [None]
  - LOOSE TOOTH [None]
  - OSTEOARTHRITIS [None]
  - OSTEONECROSIS [None]
  - RHEUMATOID ARTHRITIS [None]
  - TOOTHACHE [None]
